FAERS Safety Report 24450579 (Version 1)
Quarter: 2024Q4

REPORT INFORMATION
  Report Type: Spontaneous
  Country: JP (occurrence: JP)
  Receive Date: 20241017
  Receipt Date: 20241017
  Transmission Date: 20250114
  Serious: Yes (Death, Other)
  Sender: MERCK
  Company Number: JP-MSD-2410JPN001697J

PATIENT
  Age: 53 Year
  Sex: Female
  Weight: 44 kg

DRUGS (5)
  1. KEYTRUDA [Suspect]
     Active Substance: PEMBROLIZUMAB
     Indication: Cervix carcinoma stage IV
     Dosage: 200 MILLIGRAM
     Route: 042
     Dates: start: 20240522, end: 20240522
  2. PACLITAXEL [Suspect]
     Active Substance: PACLITAXEL
     Indication: Cervix carcinoma stage IV
     Dosage: 230 MILLIGRAM
     Route: 042
     Dates: start: 20240522, end: 20240522
  3. CARBOPLATIN [Suspect]
     Active Substance: CARBOPLATIN
     Indication: Cervix carcinoma stage IV
     Dosage: 470 MILLIGRAM
     Route: 042
     Dates: start: 20240522, end: 20240522
  4. AVASTIN [Suspect]
     Active Substance: BEVACIZUMAB
     Indication: Cervix carcinoma stage IV
     Dosage: 660 MILLIGRAM
     Route: 042
     Dates: start: 20240522, end: 20240522
  5. CALONAL [Concomitant]
     Active Substance: ACETAMINOPHEN
     Dosage: UNK
     Route: 048
     Dates: end: 20240525

REACTIONS (3)
  - Septic shock [Fatal]
  - Disseminated intravascular coagulation [Fatal]
  - Cerebral infarction [Fatal]

NARRATIVE: CASE EVENT DATE: 20240531
